FAERS Safety Report 8925601 (Version 3)
Quarter: 2012Q4

REPORT INFORMATION
  Report Type: 
  Country: JP (occurrence: JP)
  Receive Date: 20121126
  Receipt Date: 20121212
  Transmission Date: 20130627
  Serious: Yes (Life-Threatening, Hospitalization)
  Sender: FDA-Public Use
  Company Number: JP-ELI_LILLY_AND_COMPANY-JP201211005097

PATIENT
  Age: 59 Year
  Sex: Male
  Weight: 54 kg

DRUGS (8)
  1. CYMBALTA [Suspect]
     Indication: DIABETIC NEUROPATHY
     Dosage: 40 mg, each morning
     Route: 048
     Dates: start: 20120912, end: 20120924
  2. CYMBALTA [Suspect]
     Dosage: 20 mg, bid
     Route: 048
     Dates: start: 20120925
  3. CRESTOR [Concomitant]
     Indication: HYPERCHOLESTEROLAEMIA
     Dosage: 2.5 mg, qd
     Route: 048
     Dates: start: 20120404
  4. ALLOZYM [Concomitant]
     Indication: HYPERURICAEMIA
     Dosage: 100 mg, qd
     Route: 048
     Dates: start: 20120404
  5. JANUVIA [Concomitant]
     Indication: DIABETES MELLITUS
     Dosage: 50 mg, qd
     Route: 048
     Dates: start: 20120404
  6. PROHEPARUM [Concomitant]
     Indication: LIVER DISORDER
     Dosage: UNK UNK, bid
     Route: 048
     Dates: start: 20120925
  7. URSO [Concomitant]
     Route: 048
  8. AMARYL [Concomitant]
     Route: 048

REACTIONS (3)
  - Hypotension [Recovering/Resolving]
  - Blood potassium decreased [Recovered/Resolved]
  - Dizziness [Recovered/Resolved]
